FAERS Safety Report 4537568-0 (Version None)
Quarter: 2004Q4

REPORT INFORMATION
  Report Type: 
  Country: None (occurrence: None)
  Receive Date: 20041221
  Receipt Date: 20040830
  Transmission Date: 20050328
  Serious: No
  Sender: FDA-Public Use
  Company Number: A-US2004-07284

PATIENT
  Age: 37 Year
  Sex: Female

DRUGS (3)
  1. TRACLEER [Suspect]
     Indication: PULMONARY HYPERTENSION
     Dosage: 62.5 MG, BID, ORAL
     Route: 048
     Dates: start: 20040704, end: 20040708
  2. VIAGRA [Concomitant]
  3. ORTHO-NOVUM (MESTRANOL, NORETHISTERONE) [Concomitant]

REACTIONS (2)
  - DERMATITIS [None]
  - PRURITUS [None]
